FAERS Safety Report 9330165 (Version 3)
Quarter: 2013Q4

REPORT INFORMATION
  Report Type: Spontaneous
  Country: US (occurrence: US)
  Receive Date: 20130604
  Receipt Date: 20131122
  Transmission Date: 20140711
  Serious: Yes (Death, Hospitalization)
  Sender: FDA-Public Use
  Company Number: US-B.I. PHARMACEUTICALS,INC./RIDGEFIELD-2013-BI-15621BP

PATIENT
  Age: 70 Year
  Sex: Female
  Weight: 79.38 kg

DRUGS (20)
  1. PRADAXA [Suspect]
     Indication: ATRIAL FIBRILLATION
     Dosage: 150 MG
     Dates: start: 20110308
  2. CARVEDILOL [Concomitant]
  3. POTASSIUM CHLORIDE [Concomitant]
  4. REMERON SOLTAB [Concomitant]
  5. TYLENOL [Concomitant]
  6. LASIX [Concomitant]
  7. BACTRIM [Concomitant]
  8. ALBUTEROL [Concomitant]
  9. OMEPRAZOLE [Concomitant]
  10. CYMBALTA [Concomitant]
  11. ASPIRIN [Concomitant]
  12. LYRICA [Concomitant]
  13. NEURONTIN [Concomitant]
  14. DEMADEX [Concomitant]
  15. CLARITIN [Concomitant]
  16. HYDRALAZINE [Concomitant]
  17. HUMULIN R [Concomitant]
  18. LANTUS [Concomitant]
     Dosage: 20 MEQ
  19. TORSEMIDE [Concomitant]
     Dosage: 40 MG
     Route: 048
  20. LEVAQUIN [Concomitant]

REACTIONS (5)
  - Cardiomyopathy [Fatal]
  - Cardiogenic shock [Fatal]
  - Renal failure acute [Fatal]
  - Haemorrhage [Unknown]
  - Haematuria [Unknown]
